FAERS Safety Report 15986426 (Version 19)
Quarter: 2022Q1

REPORT INFORMATION
  Report Type: Spontaneous
  Country: BR (occurrence: BR)
  Receive Date: 20190220
  Receipt Date: 20220114
  Transmission Date: 20220423
  Serious: Yes (Other)
  Sender: FDA-Public Use
  Company Number: BR-GLAXOSMITHKLINE-BR2017GSK149224

PATIENT
  Sex: Female
  Weight: 96 kg

DRUGS (8)
  1. BENLYSTA [Suspect]
     Active Substance: BELIMUMAB
     Indication: Systemic lupus erythematosus
     Dosage: 960 MG
     Dates: start: 20170809
  2. SERETIDE [Suspect]
     Active Substance: FLUTICASONE PROPIONATE\SALMETEROL XINAFOATE
     Indication: Product used for unknown indication
     Dosage: UNK, 25 + 125 MCG
  3. CORTISONE ACETATE [Suspect]
     Active Substance: CORTISONE ACETATE
     Indication: Product used for unknown indication
     Dosage: UNK
  4. CHLOROQUINE [Suspect]
     Active Substance: CHLOROQUINE
     Indication: Product used for unknown indication
     Dosage: UNK
  5. COVID-19 VACCINE [Concomitant]
     Indication: COVID-19 prophylaxis
     Dosage: UNK
  6. DULOXETINE HYDROCHLORIDE [Concomitant]
     Active Substance: DULOXETINE HYDROCHLORIDE
     Indication: Fibromyalgia
     Dosage: 60 MG
  7. DEFLAZACORT [Concomitant]
     Active Substance: DEFLAZACORT
     Indication: Fibromyalgia
     Dosage: 6 MG, BID
  8. DEFLAZACORT [Concomitant]
     Active Substance: DEFLAZACORT
     Dosage: 3 DF, QD (3 TABLET IN THE MORNING) SINCE 20 DAYS

REACTIONS (53)
  - Nephrolithiasis [Recovered/Resolved]
  - Choking [Recovered/Resolved]
  - Systemic lupus erythematosus [Unknown]
  - Pulmonary fibrosis [Unknown]
  - Dyspnoea [Unknown]
  - Skin discolouration [Unknown]
  - Nervousness [Not Recovered/Not Resolved]
  - Pain in extremity [Not Recovered/Not Resolved]
  - Varicose vein [Unknown]
  - Fatigue [Not Recovered/Not Resolved]
  - Cough [Not Recovered/Not Resolved]
  - Emotional distress [Not Recovered/Not Resolved]
  - Hypotension [Not Recovered/Not Resolved]
  - Weight decreased [Recovered/Resolved]
  - Haematoma [Recovered/Resolved]
  - Nasopharyngitis [Recovered/Resolved]
  - Depression [Unknown]
  - Weight increased [Recovered/Resolved]
  - Depressed mood [Unknown]
  - Decreased appetite [Recovered/Resolved]
  - Malaise [Not Recovered/Not Resolved]
  - Eye disorder [Not Recovered/Not Resolved]
  - Visual impairment [Not Recovered/Not Resolved]
  - Vision blurred [Not Recovered/Not Resolved]
  - Anxiety [Not Recovered/Not Resolved]
  - Poor quality sleep [Not Recovered/Not Resolved]
  - Memory impairment [Not Recovered/Not Resolved]
  - Retinal disorder [Not Recovered/Not Resolved]
  - Limb injury [Unknown]
  - Fear [Not Recovered/Not Resolved]
  - Stress [Not Recovered/Not Resolved]
  - Influenza [Not Recovered/Not Resolved]
  - Asthma [Unknown]
  - Lung opacity [Unknown]
  - Exostosis [Unknown]
  - Tooth fracture [Unknown]
  - Dyspnoea exertional [Unknown]
  - Pain [Unknown]
  - Movement disorder [Unknown]
  - Ageusia [Unknown]
  - Arthralgia [Unknown]
  - Eye pain [Unknown]
  - Toothache [Unknown]
  - Decreased immune responsiveness [Not Recovered/Not Resolved]
  - Therapy cessation [Unknown]
  - Product availability issue [Unknown]
  - Inappropriate schedule of product administration [Not Recovered/Not Resolved]
  - Circumstance or information capable of leading to medication error [Not Recovered/Not Resolved]
  - Underdose [Recovered/Resolved]
  - Product dose omission issue [Recovered/Resolved]
  - Social problem [Unknown]
  - Patient isolation [Unknown]
  - Drug effect less than expected [Unknown]
